FAERS Safety Report 4924511-5 (Version None)
Quarter: 2006Q1

REPORT INFORMATION
  Report Type: 
  Country: None (occurrence: None)
  Receive Date: 20060222
  Receipt Date: 20060210
  Transmission Date: 20060701
  Serious: Yes (Other)
  Sender: FDA-Public Use
  Company Number: 2006022064

PATIENT
  Age: 18 Year
  Sex: Female

DRUGS (5)
  1. DILANTIN [Suspect]
     Indication: CONVULSION
     Dosage: ORAL
     Route: 048
     Dates: start: 20050101
  2. CYCLOPHOSPHAMIDE [Suspect]
     Indication: CENTRAL NERVOUS SYSTEM INFLAMMATION
  3. METOCLOPRAMIDE [Suspect]
     Indication: ILL-DEFINED DISORDER
     Dosage: PRN
  4. KYTRIL [Suspect]
     Indication: ILL-DEFINED DISORDER
     Dosage: INTERVAL: X 1
  5. KEPPRA [Concomitant]

REACTIONS (7)
  - COMA [None]
  - CONVULSION [None]
  - DISEASE PROGRESSION [None]
  - DRUG INTERACTION [None]
  - DRUG LEVEL BELOW THERAPEUTIC [None]
  - DRUG LEVEL FLUCTUATING [None]
  - PHARMACEUTICAL PRODUCT COMPLAINT [None]
